FAERS Safety Report 12715144 (Version 2)
Quarter: 2016Q3

REPORT INFORMATION
  Report Type: Report from Study
  Country: US (occurrence: US)
  Receive Date: 20160905
  Receipt Date: 20160913
  Transmission Date: 20161109
  Serious: Yes (Death)
  Sender: FDA-Public Use
  Company Number: US-BIOGEN-2016BI00284284

PATIENT
  Age: 69 Year
  Sex: Male
  Weight: 119 kg

DRUGS (3)
  1. TYSABRI [Suspect]
     Active Substance: NATALIZUMAB
     Indication: ISCHAEMIC STROKE
     Route: 042
     Dates: start: 20160822
  2. POTASSIUM CHLORIDE 20 MEQ IN 0.9% L-SODIUM CHLORIDE [Concomitant]
     Indication: FLUID IMBALANCE
  3. NICARDIPINE [Concomitant]
     Active Substance: NICARDIPINE
     Indication: HYPERTENSION
     Dosage: 5MG/HR
     Route: 042
     Dates: start: 20160822, end: 20160822

REACTIONS (1)
  - Brain herniation [Fatal]

NARRATIVE: CASE EVENT DATE: 20160825
